FAERS Safety Report 6740455-0 (Version None)
Quarter: 2010Q2

REPORT INFORMATION
  Report Type: 
  Country: None (occurrence: None)
  Receive Date: 20100525
  Receipt Date: 20100301
  Transmission Date: 20101027
  Serious: No
  Sender: FDA-Public Use
  Company Number: US-ALLERGAN-1002714US

PATIENT
  Sex: Male

DRUGS (2)
  1. ACZONE [Suspect]
     Indication: DRUG USE FOR UNKNOWN INDICATION
     Route: 061
  2. BENZOYL PEROXIDE [Concomitant]
     Route: 061

REACTIONS (1)
  - SKIN HYPERPIGMENTATION [None]
